FAERS Safety Report 10576548 (Version 1)
Quarter: 2014Q4

REPORT INFORMATION
  Report Type: Spontaneous
  Country: US (occurrence: None)
  Receive Date: 20141110
  Receipt Date: 20141110
  Transmission Date: 20150529
  Serious: Yes (Hospitalization)
  Sender: FDA-Public Use
  Company Number: None

PATIENT
  Age: 60 Year
  Sex: Male
  Weight: 59.42 kg

DRUGS (3)
  1. CEPHALEXIN 500MG [Suspect]
     Active Substance: CEPHALEXIN
     Indication: DRUG THERAPY
     Dosage: 1 PILL
     Route: 048
     Dates: start: 20140818, end: 20140830
  2. AMOXICILLIAN 500MG -GENERIC FOR AMOXIL SAND [Suspect]
     Active Substance: AMOXICILLIN
     Indication: TOOTH EXTRACTION
     Dosage: 1 PILL
     Route: 048
     Dates: start: 20140727, end: 20140805
  3. AMOXICILLIAN 500MG -GENERIC FOR AMOXIL SAND [Suspect]
     Active Substance: AMOXICILLIN
     Indication: PROPHYLAXIS
     Dosage: 1 PILL
     Route: 048
     Dates: start: 20140727, end: 20140805

REACTIONS (1)
  - Stevens-Johnson syndrome [None]

NARRATIVE: CASE EVENT DATE: 20140908
